FAERS Safety Report 7797744-0 (Version None)
Quarter: 2011Q4

REPORT INFORMATION
  Report Type: 
  Country: None (occurrence: None)
  Receive Date: 20111005
  Receipt Date: 20110922
  Transmission Date: 20120403
  Serious: Yes (Other)
  Sender: FDA-Public Use
  Company Number: PHHY2011AR74139

PATIENT
  Sex: Male

DRUGS (1)
  1. ONBREZ [Suspect]
     Indication: DYSPNOEA
     Dosage: 150 UG, DAILY
     Dates: start: 20110628

REACTIONS (9)
  - HYPERSENSITIVITY [None]
  - ERYTHEMA [None]
  - PRODUCTIVE COUGH [None]
  - BRONCHITIS [None]
  - NASOPHARYNGITIS [None]
  - MUSCLE SPASMS [None]
  - PULMONARY CONGESTION [None]
  - MALAISE [None]
  - SKIN IRRITATION [None]
